FAERS Safety Report 6080182-9 (Version None)
Quarter: 2009Q1

REPORT INFORMATION
  Report Type: 
  Country: None (occurrence: None)
  Receive Date: 20090217
  Receipt Date: 20090203
  Transmission Date: 20090719
  Serious: Yes (Hospitalization, Other)
  Sender: FDA-Public Use
  Company Number: US-AVENTIS-200817726US

PATIENT
  Sex: Male

DRUGS (9)
  1. KETEK [Suspect]
     Indication: ACUTE SINUSITIS
     Route: 048
     Dates: start: 20061113
  2. NASONEX [Suspect]
     Indication: ACUTE SINUSITIS
     Dosage: DOSE: 2 SPRAYS EACH NOSTRIL (50 MCG)
     Route: 045
     Dates: start: 20061113
  3. ZOCOR [Concomitant]
     Dosage: DOSE: UNK
  4. TOPROL-XL [Concomitant]
     Dosage: DOSE: UNK
  5. LISINOPRIL [Concomitant]
     Dosage: DOSE: UNK
  6. PRILOSEC [Concomitant]
     Dosage: DOSE: UNK
  7. VIAGRA [Concomitant]
     Dosage: DOSE: UNK
  8. ASCORBIC ACID [Concomitant]
     Dosage: DOSE: UNK
  9. NASONEX [Concomitant]
     Dosage: DOSE: UNK

REACTIONS (19)
  - ANTIBODY TEST POSITIVE [None]
  - CHOKING [None]
  - CONSTIPATION [None]
  - DIARRHOEA [None]
  - DIPLOPIA [None]
  - DRUG HYPERSENSITIVITY [None]
  - DYSARTHRIA [None]
  - DYSPHAGIA [None]
  - DYSPNOEA [None]
  - EYE DISORDER [None]
  - FATIGUE [None]
  - MASTICATION DISORDER [None]
  - MOVEMENT DISORDER [None]
  - MUSCLE TWITCHING [None]
  - MYASTHENIA GRAVIS [None]
  - RESPIRATORY DISTRESS [None]
  - TONGUE DISORDER [None]
  - TONGUE PARALYSIS [None]
  - VISION BLURRED [None]
